FAERS Safety Report 5504997-8 (Version None)
Quarter: 2007Q4

REPORT INFORMATION
  Report Type: 
  Country: None (occurrence: None)
  Receive Date: 20071031
  Receipt Date: 20071031
  Transmission Date: 20080405
  Serious: No
  Sender: FDA-Public Use
  Company Number: None

PATIENT
  Age: 57 Year
  Sex: Male
  Weight: 97.5234 kg

DRUGS (1)
  1. VIAGRA [Suspect]
     Indication: PROSTATECTOMY
     Dosage: 100MG AS NEEDED PO
     Route: 048
     Dates: start: 20040401, end: 20071010

REACTIONS (4)
  - DEAFNESS PERMANENT [None]
  - DEAFNESS UNILATERAL [None]
  - NERVE INJURY [None]
  - VIRAL INFECTION [None]
